FAERS Safety Report 17946910 (Version 2)
Quarter: 2020Q3

REPORT INFORMATION
  Report Type: Spontaneous
  Country: TH (occurrence: TH)
  Receive Date: 20200626
  Receipt Date: 20200703
  Transmission Date: 20201103
  Serious: Yes (Other)
  Sender: FDA-Public Use
  Company Number: TH-009507513-2006THA007001

PATIENT
  Age: 41 Year
  Sex: Female

DRUGS (16)
  1. TIENAM [Suspect]
     Active Substance: CILASTATIN SODIUM\IMIPENEM
     Dosage: UNK
     Dates: start: 20200513
  2. INVANZ [Suspect]
     Active Substance: ERTAPENEM SODIUM
     Dosage: UNK
     Dates: start: 202004
  3. ACETAMINOPHEN. [Suspect]
     Active Substance: ACETAMINOPHEN
     Indication: PYREXIA
  4. TIENAM [Suspect]
     Active Substance: CILASTATIN SODIUM\IMIPENEM
     Dosage: 500 MG IV EVERY 6 HOURS
     Route: 042
     Dates: start: 20200514, end: 20200521
  5. INVANZ [Suspect]
     Active Substance: ERTAPENEM SODIUM
     Dosage: 500 MG IV EVERY 8 HOURS FOR 7 DAYS
     Route: 042
     Dates: start: 20200423
  6. HALOPERIDOL. [Suspect]
     Active Substance: HALOPERIDOL
     Dosage: 0.5 MG ORAL 1 TABLET TWICE DAILY AFTER BREAKFAST AND BEDTIME
     Route: 048
  7. INVANZ [Suspect]
     Active Substance: ERTAPENEM SODIUM
     Dosage: UNK
     Dates: start: 20200415
  8. INVANZ [Suspect]
     Active Substance: ERTAPENEM SODIUM
     Dosage: 1 GRAM, QD
     Route: 042
     Dates: start: 20200511
  9. ENALAPRIL [Suspect]
     Active Substance: ENALAPRIL
     Dosage: 5 MG ORAL 1 TABLET TWICE DAILY AFTER BREAKFAST AND DINNER
     Route: 048
  10. INVANZ [Suspect]
     Active Substance: ERTAPENEM SODIUM
     Dosage: 250 MG IV EVERY 12 HOURS
     Route: 042
     Dates: start: 20200423
  11. CEFTRIAXONE. [Suspect]
     Active Substance: CEFTRIAXONE
     Dosage: 2 GRAM
     Dates: start: 20200410
  12. TIENAM [Suspect]
     Active Substance: CILASTATIN SODIUM\IMIPENEM
     Dosage: UNK
     Dates: start: 20200423, end: 20200424
  13. ACETAMINOPHEN. [Suspect]
     Active Substance: ACETAMINOPHEN
     Indication: PAIN
     Dosage: 500 MG ORAL 1 TABLET EVERY 4?6 HOURS ONLY WHEN SHE HAD PAIN OR FEVER
     Route: 048
  14. OMEPRAZOLE. [Suspect]
     Active Substance: OMEPRAZOLE
     Dosage: 40 MG INJECTION WHICH PREVIOUSLY PRESCRIBED 40 MG IV EVERY 24 HOURS
     Route: 042
  15. AMLODIPINE [Suspect]
     Active Substance: AMLODIPINE BESYLATE
     Dosage: 5 G ORAL 1 TABLET TWICE DAILY AFTER BREAKFAST AND DINNER
     Route: 048
  16. HALOPERIDOL. [Suspect]
     Active Substance: HALOPERIDOL
     Dosage: 5 MG/ML INJECTION IM 1 AMP WHEN SHE HAD SYMPTOM
     Route: 030

REACTIONS (7)
  - Biloma [Recovering/Resolving]
  - Ascites [Unknown]
  - Stevens-Johnson syndrome [Recovering/Resolving]
  - Adrenomegaly [Unknown]
  - Pericardial effusion [Unknown]
  - Intra-abdominal fluid collection [Unknown]
  - Hepatic steatosis [Unknown]

NARRATIVE: CASE EVENT DATE: 20200510
